FAERS Safety Report 13902881 (Version 3)
Quarter: 2018Q2

REPORT INFORMATION
  Report Type: Spontaneous
  Country: RU (occurrence: RU)
  Receive Date: 20170824
  Receipt Date: 20180418
  Transmission Date: 20180711
  Serious: Yes (Hospitalization, Other)
  Sender: FDA-Public Use
  Company Number: RU-ASTRAZENECA-2017SE86432

PATIENT
  Age: 81 Year
  Sex: Female
  Weight: 80 kg

DRUGS (21)
  1. BRILINTA [Suspect]
     Active Substance: TICAGRELOR
     Indication: MYOCARDIAL INFARCTION
     Route: 048
     Dates: start: 20170118, end: 20180316
  2. VEROSPIRON [Concomitant]
     Active Substance: SPIRONOLACTONE
     Dates: start: 20170118, end: 20170228
  3. L-THYROXIN [Concomitant]
     Active Substance: LEVOTHYROXINE SODIUM
     Dates: start: 20170228
  4. LORISTA [Concomitant]
     Active Substance: LOSARTAN POTASSIUM
     Dates: start: 20170118, end: 20170228
  5. METFORMIN [Concomitant]
     Active Substance: METFORMIN HYDROCHLORIDE
     Dates: start: 20170228
  6. METOPROLOL. [Concomitant]
     Active Substance: METOPROLOL
     Dates: start: 20170228
  7. VESICARE [Concomitant]
     Active Substance: SOLIFENACIN SUCCINATE
  8. LORISTA [Concomitant]
     Active Substance: LOSARTAN POTASSIUM
     Dates: start: 20170228
  9. TORVACARD [Concomitant]
     Active Substance: ATORVASTATIN CALCIUM
     Dates: start: 20170118, end: 20170228
  10. ACECARDOL [Concomitant]
     Active Substance: ASPIRIN
  11. L-THYROXIN [Concomitant]
     Active Substance: LEVOTHYROXINE SODIUM
     Dates: start: 20170118, end: 20170228
  12. ASPIRIN. [Concomitant]
     Active Substance: ASPIRIN
     Dates: start: 20170118, end: 20170228
  13. AMLODIPIN [Concomitant]
     Active Substance: AMLODIPINE BESYLATE
     Dates: start: 20170118, end: 20170228
  14. METOPROLOL. [Concomitant]
     Active Substance: METOPROLOL
     Dates: start: 20170118, end: 20170228
  15. CARDIOMAGNYL [Concomitant]
     Active Substance: ASPIRIN\MAGNESIUM HYDROXIDE
     Dates: start: 20170118, end: 20170228
  16. ROSUVASTATIN. [Concomitant]
     Active Substance: ROSUVASTATIN
  17. METFORMIN [Concomitant]
     Active Substance: METFORMIN HYDROCHLORIDE
     Dates: start: 20170118, end: 20170228
  18. METOPROLOL. [Concomitant]
     Active Substance: METOPROLOL
  19. CONCOR [Concomitant]
     Active Substance: BISOPROLOL FUMARATE
     Dates: start: 20170118, end: 20170228
  20. SYDNOPHARM [Concomitant]
     Dates: start: 20170118, end: 20170228
  21. ASPIRIN. [Concomitant]
     Active Substance: ASPIRIN
     Dates: start: 20170228

REACTIONS (11)
  - Blood pressure decreased [Unknown]
  - Blood urea increased [Not Recovered/Not Resolved]
  - Epistaxis [Recovered/Resolved with Sequelae]
  - Product prescribing issue [Recovered/Resolved]
  - Myocardial infarction [Unknown]
  - Contusion [Not Recovered/Not Resolved]
  - Dyspnoea exertional [Not Recovered/Not Resolved]
  - Off label use [Recovered/Resolved]
  - Arrhythmia [Not Recovered/Not Resolved]
  - Blood creatinine increased [Not Recovered/Not Resolved]
  - Tachycardia paroxysmal [Unknown]

NARRATIVE: CASE EVENT DATE: 201701
